FAERS Safety Report 10468467 (Version 2)
Quarter: 2014Q3

REPORT INFORMATION
  Report Type: Spontaneous
  Country: US (occurrence: US)
  Receive Date: 20140922
  Receipt Date: 20140922
  Transmission Date: 20150326
  Serious: No
  Sender: FDA-Public Use
  Company Number: US-ALLERGAN-1317149US

PATIENT
  Sex: Male

DRUGS (1)
  1. LASTACAFT [Suspect]
     Active Substance: ALCAFTADINE
     Indication: CONJUNCTIVITIS ALLERGIC
     Dosage: 1 GTT, QD
     Dates: start: 201302

REACTIONS (1)
  - Dermatitis contact [Recovered/Resolved]
